FAERS Safety Report 17048612 (Version 4)
Quarter: 2022Q1

REPORT INFORMATION
  Report Type: Spontaneous
  Country: US (occurrence: US)
  Receive Date: 20191119
  Receipt Date: 20220225
  Transmission Date: 20220423
  Serious: No
  Sender: FDA-Public Use
  Company Number: US-VIFOR (INTERNATIONAL) INC.-VIT-2019-11633

PATIENT
  Age: 75 Year
  Sex: Female

DRUGS (3)
  1. VELTASSA [Suspect]
     Active Substance: PATIROMER
     Indication: Hyperkalaemia
     Route: 048
     Dates: start: 20171127
  2. VELTASSA [Suspect]
     Active Substance: PATIROMER
     Route: 048
     Dates: start: 20181030
  3. VELTASSA [Suspect]
     Active Substance: PATIROMER
     Dosage: DISSOLVE CONTENTS OF 1 PACKET IN 3 OZ OF WATER AND DRINK FULL AMOUNTONCE DAILY. TAKE AS DIRECTED.
     Route: 048
     Dates: start: 20171128

REACTIONS (3)
  - Constipation [Not Recovered/Not Resolved]
  - Flatulence [Unknown]
  - Product dose omission issue [Unknown]
